FAERS Safety Report 9937554 (Version 4)
Quarter: 2014Q2

REPORT INFORMATION
  Report Type: Spontaneous
  Country: US (occurrence: US)
  Receive Date: 20140303
  Receipt Date: 20140425
  Transmission Date: 20141212
  Serious: No
  Sender: FDA-Public Use
  Company Number: US-BIOGENIDEC-2014BI018003

PATIENT
  Age: 52 Year
  Sex: Male

DRUGS (3)
  1. AVONEX [Suspect]
     Indication: MULTIPLE SCLEROSIS
     Route: 030
  2. AVONEX [Suspect]
     Indication: MULTIPLE SCLEROSIS
     Route: 030
     Dates: start: 20090901, end: 201403
  3. AVONEX [Suspect]
     Indication: MULTIPLE SCLEROSIS
     Route: 030
     Dates: start: 20140318

REACTIONS (19)
  - Fear of injection [Not Recovered/Not Resolved]
  - Memory impairment [Not Recovered/Not Resolved]
  - Coordination abnormal [Not Recovered/Not Resolved]
  - Hemiparesis [Not Recovered/Not Resolved]
  - Cognitive disorder [Not Recovered/Not Resolved]
  - Gait disturbance [Not Recovered/Not Resolved]
  - Mobility decreased [Not Recovered/Not Resolved]
  - Injection site haemorrhage [Unknown]
  - Visual field defect [Not Recovered/Not Resolved]
  - Blindness [Unknown]
  - Dehydration [Unknown]
  - Malaise [Not Recovered/Not Resolved]
  - Pain [Not Recovered/Not Resolved]
  - Fatigue [Recovered/Resolved]
  - Influenza like illness [Recovered/Resolved]
  - Pain in extremity [Not Recovered/Not Resolved]
  - Muscle spasms [Recovered/Resolved]
  - Myalgia [Recovered/Resolved]
  - Multiple sclerosis relapse [Recovered/Resolved]
